FAERS Safety Report 23178095 (Version 2)
Quarter: 2023Q4

REPORT INFORMATION
  Report Type: Spontaneous
  Country: FR (occurrence: FR)
  Receive Date: 20231113
  Receipt Date: 20231120
  Transmission Date: 20240110
  Serious: Yes (Other)
  Sender: FDA-Public Use
  Company Number: FR-BRISTOL-MYERS SQUIBB COMPANY-BMS-2018-051462

PATIENT
  Age: 80 Year
  Sex: Male
  Weight: 89 kg

DRUGS (19)
  1. ALLOPURINOL [Suspect]
     Active Substance: ALLOPURINOL
     Indication: Infection
     Dosage: UNK
     Route: 065
  2. ALLOPURINOL [Suspect]
     Active Substance: ALLOPURINOL
     Dosage: 100 MILLIGRAM, DAILY
     Route: 048
     Dates: start: 20180303
  3. MAGNESIUM CARBONATE [Suspect]
     Active Substance: MAGNESIUM CARBONATE
     Indication: Product used for unknown indication
     Dosage: UNK
     Route: 065
  4. DOLIPRANE [Suspect]
     Active Substance: ACETAMINOPHEN
     Indication: Pain
     Dosage: UNK
     Route: 065
  5. DOLIPRANE [Suspect]
     Active Substance: ACETAMINOPHEN
     Dosage: 1 G, PRN
     Route: 048
     Dates: start: 20180305
  6. PIPERACILLIN AND TAZOBACTAM [Suspect]
     Active Substance: PIPERACILLIN SODIUM\TAZOBACTAM SODIUM
     Indication: Infection
     Dosage: UNK
     Route: 065
  7. PIPERACILLIN AND TAZOBACTAM [Suspect]
     Active Substance: PIPERACILLIN SODIUM\TAZOBACTAM SODIUM
     Dosage: 4 GRAM, DAILY
     Route: 040
     Dates: start: 20180228, end: 20180301
  8. ESIDREX [Suspect]
     Active Substance: HYDROCHLOROTHIAZIDE
     Indication: Cardiac failure
     Dosage: 12.5 MILLIGRAM, DAILY
     Route: 048
     Dates: start: 20180317
  9. ESIDREX [Suspect]
     Active Substance: HYDROCHLOROTHIAZIDE
     Dosage: UNK
     Route: 065
  10. CLOXACILLIN SODIUM [Suspect]
     Active Substance: CLOXACILLIN SODIUM
     Indication: Infection
     Dosage: 8 GRAM, DAILY
     Route: 040
     Dates: start: 20180303, end: 20180307
  11. MEROPENEM [Suspect]
     Active Substance: MEROPENEM
     Indication: Infection
     Dosage: 1 GRAM, DAILY
     Route: 040
     Dates: start: 20180307
  12. MEROPENEM [Suspect]
     Active Substance: MEROPENEM
     Dosage: UNK
     Route: 065
  13. CUBICIN [Suspect]
     Active Substance: DAPTOMYCIN
     Indication: Infection
     Dosage: 880 MILLIGRAM, DAILY
     Route: 040
     Dates: start: 20180228, end: 20180303
  14. CUBICIN [Suspect]
     Active Substance: DAPTOMYCIN
     Dosage: UNK
     Route: 065
  15. WARFARIN SODIUM [Suspect]
     Active Substance: WARFARIN SODIUM
     Indication: Atrial fibrillation
     Dosage: UNK
     Route: 048
     Dates: start: 20180317
  16. CLOXACILLIN [Suspect]
     Active Substance: CLOXACILLIN
     Indication: Product used for unknown indication
     Dosage: UNK
     Route: 065
  17. WARFARIN [Suspect]
     Active Substance: WARFARIN
     Indication: Product used for unknown indication
     Dosage: UNK
     Route: 065
  18. GENTAMICIN [Suspect]
     Active Substance: GENTAMICIN
     Indication: Infection
     Dosage: 5 MILLIGRAM/KILOGRAM
     Route: 040
     Dates: start: 20180228, end: 20180301
  19. MAGNESIUM [Suspect]
     Active Substance: MAGNESIUM
     Indication: Hypomagnesaemia
     Dosage: 1 SACHET IN THE EVENING
     Route: 048
     Dates: start: 20180308

REACTIONS (2)
  - Rash [Unknown]
  - Rash [Unknown]

NARRATIVE: CASE EVENT DATE: 20180317
